FAERS Safety Report 7346682-6 (Version None)
Quarter: 2011Q1

REPORT INFORMATION
  Report Type: 
  Country: None (occurrence: None)
  Receive Date: 20110311
  Receipt Date: 20110301
  Transmission Date: 20110831
  Serious: Yes (Hospitalization)
  Sender: FDA-Public Use
  Company Number: JP-SANOFI-AVENTIS-2011SA013828

PATIENT
  Age: 42 Year
  Sex: Female

DRUGS (4)
  1. LUVOX [Suspect]
     Indication: INTENTIONAL OVERDOSE
     Route: 048
  2. LORCAM [Concomitant]
     Route: 048
  3. TERNELIN [Concomitant]
     Route: 048
  4. MYSLEE [Suspect]
     Indication: INTENTIONAL OVERDOSE
     Route: 048

REACTIONS (2)
  - ACUTE RESPIRATORY DISTRESS SYNDROME [None]
  - MULTIPLE DRUG OVERDOSE INTENTIONAL [None]
